FAERS Safety Report 5525674-3 (Version None)
Quarter: 2007Q4

REPORT INFORMATION
  Report Type: 
  Country: None (occurrence: None)
  Receive Date: 20071126
  Receipt Date: 20071116
  Transmission Date: 20080405
  Serious: Yes (Life-Threatening, Hospitalization, Disabling)
  Sender: FDA-Public Use
  Company Number: DK-MERCK-0711DNK00006

PATIENT
  Sex: Male
  Weight: 84 kg

DRUGS (3)
  1. ZOCOR [Interacting]
     Indication: HYPERCHOLESTEROLAEMIA
     Route: 048
     Dates: end: 20070620
  2. METHOTREXATE [Suspect]
     Indication: PSORIATIC ARTHROPATHY
     Route: 048
     Dates: start: 20061128, end: 20070323
  3. HYZAAR [Suspect]
     Indication: HYPERTENSION
     Route: 048
     Dates: end: 20070620

REACTIONS (3)
  - DRUG INTERACTION [None]
  - HEPATIC CIRRHOSIS [None]
  - JAUNDICE [None]
